FAERS Safety Report 5728961-9 (Version None)
Quarter: 2008Q2

REPORT INFORMATION
  Report Type: 
  Country: None (occurrence: None)
  Receive Date: 20080430
  Receipt Date: 20080226
  Transmission Date: 20081010
  Serious: No
  Sender: FDA-Public Use
  Company Number: 2008PV034387

PATIENT
  Age: 63 Year
  Sex: Male
  Weight: 109.7705 kg

DRUGS (4)
  1. SYMLIN [Suspect]
     Indication: TYPE 2 DIABETES MELLITUS
     Dosage: 120 MCG;TID;SC ; SC ; 84 MCG;TID;SC ; 60 MCG;TID;SC
     Route: 058
     Dates: start: 20071201
  2. SYMLIN [Suspect]
     Indication: TYPE 2 DIABETES MELLITUS
     Dosage: 120 MCG;TID;SC ; SC ; 84 MCG;TID;SC ; 60 MCG;TID;SC
     Route: 058
     Dates: start: 20080212
  3. HUMALOG [Concomitant]
  4. LANTUS [Concomitant]

REACTIONS (3)
  - ABDOMINAL PAIN UPPER [None]
  - BLOOD GLUCOSE INCREASED [None]
  - NAUSEA [None]
